FAERS Safety Report 17217832 (Version 3)
Quarter: 2020Q2

REPORT INFORMATION
  Report Type: Spontaneous
  Country: US (occurrence: US)
  Receive Date: 20191231
  Receipt Date: 20200424
  Transmission Date: 20200713
  Serious: Yes (Other)
  Sender: FDA-Public Use
  Company Number: US-GILEAD-2019-0444744

PATIENT
  Age: 58 Year
  Sex: Male

DRUGS (39)
  1. ALLERGY RELIEF [LORATADINE] [Concomitant]
  2. BUPROPION HYDROCHLORIDE. [Concomitant]
     Active Substance: BUPROPION HYDROCHLORIDE
  3. PANTOPRAZOLE [Concomitant]
     Active Substance: PANTOPRAZOLE
  4. BACITRACIN. [Concomitant]
     Active Substance: BACITRACIN
  5. GABAPENTIN. [Concomitant]
     Active Substance: GABAPENTIN
  6. ATENOLOL. [Concomitant]
     Active Substance: ATENOLOL
  7. ABILIFY [Concomitant]
     Active Substance: ARIPIPRAZOLE
  8. LISINOPRIL. [Concomitant]
     Active Substance: LISINOPRIL
  9. HYDROXYZINE [Concomitant]
     Active Substance: HYDROXYZINE HYDROCHLORIDE
  10. TRUVADA [Suspect]
     Active Substance: EMTRICITABINE\TENOFOVIR DISOPROXIL FUMARATE
     Dosage: UNK
     Route: 065
     Dates: start: 2015, end: 2017
  11. DESCOVY [Concomitant]
     Active Substance: EMTRICITABINE\TENOFOVIR ALAFENAMIDE FUMARATE
  12. CYCLOBENZAPRINE. [Concomitant]
     Active Substance: CYCLOBENZAPRINE
  13. PHENTERMINE. [Concomitant]
     Active Substance: PHENTERMINE
  14. DOCUSATE SODIUM. [Concomitant]
     Active Substance: DOCUSATE SODIUM
  15. GAVILYTE G [Concomitant]
     Active Substance: POLYETHYLENE GLYCOL 3350\POTASSIUM CHLORIDE\SODIUM BICARBONATE\SODIUM CHLORIDE\SODIUM SULFATE ANHYDROUS
  16. TRIAMCINOLONE ACETONIDE. [Concomitant]
     Active Substance: TRIAMCINOLONE ACETONIDE
  17. VIREAD [Suspect]
     Active Substance: TENOFOVIR DISOPROXIL FUMARATE
     Indication: PRODUCT USED FOR UNKNOWN INDICATION
     Dosage: UNK
     Route: 048
     Dates: start: 2010, end: 2012
  18. ISENTRESS [Concomitant]
     Active Substance: RALTEGRAVIR POTASSIUM
  19. PAROXETINE HCL [Concomitant]
     Active Substance: PAROXETINE HYDROCHLORIDE
  20. CLINDAMYCIN. [Concomitant]
     Active Substance: CLINDAMYCIN
  21. LOSARTAN. [Concomitant]
     Active Substance: LOSARTAN
  22. TRAMADOL. [Concomitant]
     Active Substance: TRAMADOL
  23. TESTOSTERONE. [Concomitant]
     Active Substance: TESTOSTERONE
  24. HYDROCHLOROTHIAZIDE. [Concomitant]
     Active Substance: HYDROCHLOROTHIAZIDE
  25. ASPIRIN [ACETYLSALICYLIC ACID] [Concomitant]
     Active Substance: ASPIRIN
  26. DOXYCYCLINE HYCLATE. [Concomitant]
     Active Substance: DOXYCYCLINE HYCLATE
  27. ATORVASTATIN [Concomitant]
     Active Substance: ATORVASTATIN
  28. LACTULOSE. [Concomitant]
     Active Substance: LACTULOSE
  29. TOPIRAMATE. [Concomitant]
     Active Substance: TOPIRAMATE
  30. ACETAMINOPHEN;CODEINE [Concomitant]
     Active Substance: ACETAMINOPHEN\CODEINE PHOSPHATE
  31. METFORMIN [Concomitant]
     Active Substance: METFORMIN HYDROCHLORIDE
  32. TRUVADA [Suspect]
     Active Substance: EMTRICITABINE\TENOFOVIR DISOPROXIL FUMARATE
     Indication: HIV INFECTION
     Dosage: UNK
     Route: 065
     Dates: start: 201101, end: 20161128
  33. PRAVASTATIN. [Concomitant]
     Active Substance: PRAVASTATIN
  34. DOXAZOSIN [Concomitant]
     Active Substance: DOXAZOSIN MESYLATE
  35. SULFAMETHOXAZOLE;TRIMETHOPRIM [Concomitant]
     Active Substance: SULFAMETHOXAZOLE\TRIMETHOPRIM
  36. HYDROCODONE/ACETAMINOPHEN [Concomitant]
     Active Substance: ACETAMINOPHEN\HYDROCODONE
  37. FLUTICASONE PROPIONATE. [Concomitant]
     Active Substance: FLUTICASONE PROPIONATE
  38. POLYETHYLENE GLYCOL [Concomitant]
     Active Substance: POLYETHYLENE GLYCOLS
  39. GLIMEPIRIDE. [Concomitant]
     Active Substance: GLIMEPIRIDE

REACTIONS (11)
  - Emotional distress [Unknown]
  - Foot fracture [Not Recovered/Not Resolved]
  - Anhedonia [Unknown]
  - Spinal fracture [Unknown]
  - Ankle fracture [Not Recovered/Not Resolved]
  - Anxiety [Unknown]
  - Renal failure [Not Recovered/Not Resolved]
  - Bone density decreased [Unknown]
  - Tooth loss [Unknown]
  - Pain [Unknown]
  - Economic problem [Unknown]

NARRATIVE: CASE EVENT DATE: 201805
